FAERS Safety Report 9697063 (Version 3)
Quarter: 2015Q3

REPORT INFORMATION
  Report Type: Spontaneous
  Country: US (occurrence: US)
  Receive Date: 20131120
  Receipt Date: 20150707
  Transmission Date: 20151125
  Serious: Yes (Disabling, Other)
  Sender: FDA-Public Use
  Company Number: US-JNJFOC-20131105579

PATIENT
  Age: 77 Year
  Sex: Female
  Weight: 58.97 kg

DRUGS (16)
  1. MAX FREEZE [Suspect]
     Active Substance: CAMPHOR (NATURAL)\MENTHOL
     Indication: ANALGESIC THERAPY
     Route: 061
  2. COMTAN [Concomitant]
     Active Substance: ENTACAPONE
     Indication: PARKINSON^S DISEASE
     Route: 065
     Dates: start: 2011
  3. UNKNOWN MEDICATION [Concomitant]
     Active Substance: UNSPECIFIED INGREDIENT
     Indication: PRODUCT USED FOR UNKNOWN INDICATION
     Route: 065
  4. LOSARTAN. [Concomitant]
     Active Substance: LOSARTAN
     Indication: PRODUCT USED FOR UNKNOWN INDICATION
     Route: 065
  5. CARBIDOPA. [Concomitant]
     Active Substance: CARBIDOPA
     Indication: PARKINSON^S DISEASE
     Route: 065
     Dates: start: 2008
  6. RESTASIS [Concomitant]
     Active Substance: CYCLOSPORINE
     Indication: EYE DISORDER
     Route: 065
     Dates: start: 2008
  7. DILAUDID [Concomitant]
     Active Substance: HYDROMORPHONE HYDROCHLORIDE
     Indication: PAIN
     Route: 065
     Dates: start: 2008
  8. ATIVAN [Concomitant]
     Active Substance: LORAZEPAM
     Indication: HIATUS HERNIA
     Route: 065
     Dates: start: 2008
  9. CENTRUM (MINERALS NOS, VITAMINS NOS) [Concomitant]
     Route: 065
  10. BENGAY ORIGINAL [Suspect]
     Active Substance: MENTHOL\METHYL SALICYLATE
     Indication: ANALGESIC THERAPY
     Dosage: A COUPLE SQUEEZES
     Route: 061
     Dates: start: 1952
  11. GENTEAL EYE DROPS [Concomitant]
     Indication: EYE DISORDER
     Route: 065
     Dates: start: 2010
  12. ADDERALL [Concomitant]
     Active Substance: AMPHETAMINE ASPARTATE\AMPHETAMINE SULFATE\DEXTROAMPHETAMINE SACCHARATE\DEXTROAMPHETAMINE SULFATE
     Indication: ENERGY INCREASED
     Route: 065
     Dates: start: 1998
  13. CLEOCIN [Concomitant]
     Active Substance: CLINDAMYCIN PHOSPHATE
     Indication: SKIN INFECTION
     Route: 065
     Dates: start: 2012
  14. VITAMIN D [Concomitant]
     Active Substance: CHOLECALCIFEROL
     Route: 065
  15. SINEMET [Concomitant]
     Active Substance: CARBIDOPA\LEVODOPA
     Indication: PARKINSON^S DISEASE
     Route: 065
     Dates: start: 2008
  16. LIDOCAIN [Concomitant]
     Active Substance: LIDOCAINE
     Route: 065

REACTIONS (5)
  - Loss of consciousness [Recovered/Resolved]
  - Burning sensation [Recovering/Resolving]
  - Anaphylactic reaction [Recovered/Resolved]
  - Infection [Unknown]
  - Hyperhidrosis [Recovered/Resolved]

NARRATIVE: CASE EVENT DATE: 20131107
